FAERS Safety Report 25564494 (Version 1)
Quarter: 2025Q3

REPORT INFORMATION
  Report Type: Spontaneous
  Country: US (occurrence: US)
  Receive Date: 20250716
  Receipt Date: 20250716
  Transmission Date: 20251021
  Serious: No
  Sender: NOVO NORDISK
  Company Number: US-NOVOPROD-1331172

PATIENT
  Sex: Female

DRUGS (1)
  1. OZEMPIC [Suspect]
     Active Substance: SEMAGLUTIDE
     Indication: Weight control
     Route: 058

REACTIONS (2)
  - Weight decreased [Recovered/Resolved]
  - Product used for unknown indication [Recovered/Resolved]

NARRATIVE: CASE EVENT DATE: 20231006
